FAERS Safety Report 20534737 (Version 2)
Quarter: 2022Q1

REPORT INFORMATION
  Report Type: Report from Study
  Country: US (occurrence: US)
  Receive Date: 20220302
  Receipt Date: 20220314
  Transmission Date: 20220423
  Serious: Yes (Other)
  Sender: FDA-Public Use
  Company Number: US-JNJFOC-20220253809

PATIENT
  Sex: Male

DRUGS (5)
  1. SPRAVATO [Suspect]
     Active Substance: ESKETAMINE
     Indication: Depression
     Dosage: 56 MG, 1 TOTAL DOSE
     Dates: start: 20200401, end: 20200401
  2. SPRAVATO [Suspect]
     Active Substance: ESKETAMINE
     Dosage: 70 MG, 13 TOTAL DOSES
     Dates: start: 20200403, end: 20200617
  3. SPRAVATO [Suspect]
     Active Substance: ESKETAMINE
     Dosage: 28 MG, 1 TOTAL DOSE
     Dates: start: 20200701, end: 20200701
  4. SPRAVATO [Suspect]
     Active Substance: ESKETAMINE
     Dosage: 84 MG, 22 TOTAL DOSES
     Dates: start: 20200715, end: 20210524
  5. SPRAVATO [Suspect]
     Active Substance: ESKETAMINE
     Dosage: 56 MG, 1 TOTAL DOSE
     Dates: start: 20211213, end: 20211213

REACTIONS (1)
  - Dental operation [Unknown]
